FAERS Safety Report 26128904 (Version 1)
Quarter: 2025Q4

REPORT INFORMATION
  Report Type: Spontaneous
  Country: EU (occurrence: EU)
  Receive Date: 20251208
  Receipt Date: 20251208
  Transmission Date: 20260118
  Serious: Yes (Hospitalization, Other)
  Sender: CELLTRION
  Company Number: None

PATIENT

DRUGS (5)
  1. RITUXIMAB [Suspect]
     Active Substance: RITUXIMAB
     Indication: Non-Hodgkin^s lymphoma
     Dosage: 375 MG/M2 (MILLIGRAM/SQ. METER), 1 TOTAL
     Route: 042
     Dates: start: 20250328, end: 20250328
  2. RITUXIMAB [Suspect]
     Active Substance: RITUXIMAB
     Dosage: 375 MG/M2 (MILLIGRAM/SQ. METER), 1 TOTAL
     Route: 042
     Dates: start: 20250404, end: 20250404
  3. RITUXIMAB [Suspect]
     Active Substance: RITUXIMAB
     Dosage: 375 MG/M2 (MILLIGRAM/SQ. METER), 1 TOTAL
     Route: 042
     Dates: start: 20250411, end: 20250411
  4. RITUXIMAB [Suspect]
     Active Substance: RITUXIMAB
     Dosage: 375 MG/M2 (MILLIGRAM/SQ. METER), 1 TOTAL
     Route: 042
     Dates: start: 20250523, end: 20250523
  5. LANSOPRAZOLE [Suspect]
     Active Substance: LANSOPRAZOLE
     Indication: Gastrooesophageal reflux disease
     Dosage: 15 MILLIGRAM, QD
     Route: 042
     Dates: start: 20250328, end: 20250823

REACTIONS (1)
  - Colitis microscopic [Recovered/Resolved]

NARRATIVE: CASE EVENT DATE: 20250812
